FAERS Safety Report 5206796-3 (Version None)
Quarter: 2006Q4

REPORT INFORMATION
  Report Type: 
  Country: None (occurrence: None)
  Receive Date: 20061026
  Receipt Date: 20060901
  Transmission Date: 20070319
  Serious: No
  Sender: FDA-Public Use
  Company Number: 2006109473

PATIENT
  Age: 34 Year
  Sex: Female

DRUGS (3)
  1. LYRICA [Suspect]
     Indication: PAIN
     Dosage: 75 MG (75 MG, 1 IN 1 D)
     Dates: start: 20060101, end: 20060801
  2. ANTIDEPRESSANTS (ANTIDEPRESSANTS) [Suspect]
     Indication: PAIN
     Dates: start: 20060101, end: 20060101
  3. AMITRIPTYLINE HCL [Concomitant]

REACTIONS (4)
  - DIZZINESS [None]
  - NAUSEA [None]
  - WEIGHT DECREASED [None]
  - WEIGHT FLUCTUATION [None]
